FAERS Safety Report 7068720-0 (Version None)
Quarter: 2010Q4

REPORT INFORMATION
  Report Type: 
  Country: None (occurrence: None)
  Receive Date: 20101027
  Receipt Date: 20101027
  Transmission Date: 20110411
  Serious: Yes (Other)
  Sender: FDA-Public Use
  Company Number: None

PATIENT
  Age: 5 Month
  Sex: Male
  Weight: 9.9791 kg

DRUGS (1)
  1. HYLAND'S TEETHING TABLETS N/A HYLAND'S INC. [Suspect]
     Indication: TEETHING
     Dosage: 2 TABLETS 4 X DAY PO
     Route: 048
     Dates: start: 20100912, end: 20101025

REACTIONS (5)
  - CONSTIPATION [None]
  - CRYING [None]
  - POOR QUALITY DRUG ADMINISTERED [None]
  - PRODUCT QUALITY ISSUE [None]
  - URINE ODOUR ABNORMAL [None]
